FAERS Safety Report 10476471 (Version 2)
Quarter: 2014Q4

REPORT INFORMATION
  Report Type: Spontaneous
  Country: US (occurrence: None)
  Receive Date: 20140923
  Receipt Date: 20141021
  Transmission Date: 20150528
  Serious: Yes (Hospitalization, Other)
  Sender: FDA-Public Use
  Company Number: US-001108

PATIENT
  Age: 34 Year
  Sex: Female
  Weight: 52.16 kg

DRUGS (14)
  1. OXYCODONE [Concomitant]
     Active Substance: OXYCODONE
  2. PHYTONADIONE. [Concomitant]
     Active Substance: PHYTONADIONE
  3. PROMETRIUM [Concomitant]
     Active Substance: PROGESTERONE
  4. ERGOCALCIFEROL. [Concomitant]
     Active Substance: ERGOCALCIFEROL
  5. OPIUM TINCTURE [Concomitant]
     Active Substance: OPIUM TINCTURE
  6. IBUPROFEN. [Concomitant]
     Active Substance: IBUPROFEN
  7. PANTOPRAZOLE [Concomitant]
     Active Substance: PANTOPRAZOLE SODIUM
  8. GATTEX [Suspect]
     Active Substance: TEDUGLUTIDE\WATER
     Indication: SHORT-BOWEL SYNDROME
     Dosage: 0.2 ML QD, STREN/VOLUM: 0.2 ML[ FREQU: ONCE A DAY SUBCUTANEOUS
     Route: 058
     Dates: start: 20131030
  9. SOLUTIONS FOR PARENTERAL NUTRITION [Concomitant]
     Active Substance: AMINO ACIDS\DEXTROSE\ELECTROLYTES NOS
  10. PRENATAL 19 [Concomitant]
     Active Substance: .ALPHA.-TOCOPHEROL ACETATE, DL-\.BETA.-CAROTENE\ASCORBIC ACID\CALCIUM CARBONATE\CALCIUM PANTOTHENATE\CHOLECALCIFEROL\CYANOCOBALAMIN\DOCUSATE SODIUM\FERROUS FUMARATE\FOLIC ACID\NIACINAMIDE\PYRIDOXINE HYDROCHLORIDE\RIBOFLAVIN\THIAMINE MONONITRATE\ZINC OXIDE
  11. BENADRYL [Concomitant]
     Active Substance: DIPHENHYDRAMINE HYDROCHLORIDE
  12. OCTREOTIDE [Concomitant]
     Active Substance: OCTREOTIDE
  13. CYANOCOBALAMIN. [Concomitant]
     Active Substance: CYANOCOBALAMIN
  14. ONDANSETRON [Concomitant]
     Active Substance: ONDANSETRON

REACTIONS (6)
  - Retching [None]
  - Weight increased [None]
  - Cholelithiasis [None]
  - Pancreatitis [None]
  - Drug dose omission [None]
  - Gastrointestinal stoma output increased [None]

NARRATIVE: CASE EVENT DATE: 201401
